FAERS Safety Report 10655574 (Version 1)
Quarter: 2014Q4

REPORT INFORMATION
  Report Type: Spontaneous
  Country: US (occurrence: None)
  Receive Date: 20141205
  Receipt Date: 20141205
  Transmission Date: 20150529
  Serious: Yes (Hospitalization)
  Sender: FDA-Public Use
  Company Number: USA-2014094603

PATIENT
  Age: 49 Year
  Sex: Male

DRUGS (6)
  1. KYPROLIS [Concomitant]
     Active Substance: CARFILZOMIB
  2. METOPROLOL (METOPROLOL) [Concomitant]
     Active Substance: METOPROLOL
  3. POTASSIUM (POTASSIUM) [Concomitant]
     Active Substance: POTASSIUM
  4. POMALYST [Suspect]
     Active Substance: POMALIDOMIDE
     Indication: PLASMA CELL MYELOMA
     Dosage: 21 IN 28 D
     Route: 048
     Dates: start: 20140610
  5. COUMADIN (UNKNOWN) [Concomitant]
  6. KEPPRA [Concomitant]
     Active Substance: LEVETIRACETAM

REACTIONS (1)
  - Pneumonia [None]

NARRATIVE: CASE EVENT DATE: 20140823
